FAERS Safety Report 24748268 (Version 4)
Quarter: 2024Q4

REPORT INFORMATION
  Report Type: Spontaneous
  Country: US (occurrence: US)
  Receive Date: 20241218
  Receipt Date: 20241230
  Transmission Date: 20250115
  Serious: Yes (Hospitalization, Other)
  Sender: ABBVIE
  Company Number: US-ABBVIE-6050486

PATIENT
  Age: 55 Year
  Sex: Male

DRUGS (12)
  1. SYNTHROID [Suspect]
     Active Substance: LEVOTHYROXINE SODIUM
     Indication: Pituitary tumour
     Dosage: FORM STRENGTH: 200 MICROGRAM
     Route: 048
     Dates: start: 2017, end: 2017
  2. SYNTHROID [Suspect]
     Active Substance: LEVOTHYROXINE SODIUM
     Indication: Pituitary tumour
     Dosage: FORM STRENGTH: 188 MICROGRAM
     Route: 048
     Dates: start: 2017, end: 2017
  3. SYNTHROID [Suspect]
     Active Substance: LEVOTHYROXINE SODIUM
     Indication: Pituitary tumour
     Dosage: FORM STRENGTH: 200 MICROGRAM
     Route: 048
  4. SYNTHROID [Suspect]
     Active Substance: LEVOTHYROXINE SODIUM
     Indication: Pituitary tumour
     Dosage: FORM STRENGTH: 175 MICROGRAM
     Route: 048
     Dates: start: 2014, end: 2017
  5. SYNTHROID [Suspect]
     Active Substance: LEVOTHYROXINE SODIUM
     Indication: Pituitary tumour
     Dosage: 188 MCG
     Route: 048
  6. SYNTHROID [Suspect]
     Active Substance: LEVOTHYROXINE SODIUM
     Indication: Pituitary tumour
     Dosage: FORM STRENGTH: 175 MICROGRAM
     Route: 048
     Dates: start: 2017, end: 2018
  7. SYNTHROID [Suspect]
     Active Substance: LEVOTHYROXINE SODIUM
     Indication: Pituitary tumour
     Dosage: FORM STRENGTH: 225 MICROGRAM
     Route: 048
     Dates: start: 2017, end: 2017
  8. SYNTHROID [Suspect]
     Active Substance: LEVOTHYROXINE SODIUM
     Indication: Pituitary tumour
     Dosage: FORM STRENGTH: 175 MICROGRAM
     Route: 048
     Dates: start: 199603, end: 2012
  9. SYNTHROID [Suspect]
     Active Substance: LEVOTHYROXINE SODIUM
     Indication: Pituitary tumour
     Dosage: FORM STRENGTH: 200 MICROGRAM
     Route: 048
     Dates: start: 2019
  10. SYNTHROID [Suspect]
     Active Substance: LEVOTHYROXINE SODIUM
     Indication: Pituitary tumour
     Dosage: FORM STRENGTH: 150 MICROGRAM
     Route: 048
     Dates: start: 201202, end: 2014
  11. SYNTHROID [Suspect]
     Active Substance: LEVOTHYROXINE SODIUM
     Indication: Pituitary tumour
     Dosage: FORM STRENGTH: 188 MICROGRAM
     Route: 048
     Dates: start: 2018, end: 2019
  12. TESTOSTERONE [Concomitant]
     Active Substance: TESTOSTERONE
     Indication: Hormone therapy
     Dosage: HORMONE
     Route: 065

REACTIONS (9)
  - Seizure [Recovered/Resolved]
  - Blood thyroid stimulating hormone decreased [Recovered/Resolved]
  - Neoplasm [Not Recovered/Not Resolved]
  - Off label use [Unknown]
  - Blood luteinising hormone decreased [Unknown]
  - Peripheral coldness [Recovered/Resolved]
  - Blood follicle stimulating hormone decreased [Unknown]
  - Blood thyroid stimulating hormone abnormal [Not Recovered/Not Resolved]
  - Wound haemorrhage [Recovered/Resolved]

NARRATIVE: CASE EVENT DATE: 20120101
